FAERS Safety Report 8210476-X (Version None)
Quarter: 2012Q1

REPORT INFORMATION
  Report Type: 
  Country: None (occurrence: None)
  Receive Date: 20120314
  Receipt Date: 20110929
  Transmission Date: 20120608
  Serious: No
  Sender: FDA-Public Use
  Company Number: US-ASTRAZENECA-2011SE58684

PATIENT
  Age: 64 Year
  Sex: Female
  Weight: 58.5 kg

DRUGS (4)
  1. METOPROLOL SUCCINATE [Suspect]
     Route: 048
     Dates: start: 20110915
  2. CLONAZEPAM [Concomitant]
     Indication: ANXIETY
  3. CLONAZEPAM [Concomitant]
     Indication: SLEEP DISORDER
  4. WELLBUTRIN [Concomitant]
     Indication: DEPRESSION

REACTIONS (2)
  - OCULAR ICTERUS [None]
  - FATIGUE [None]
